FAERS Safety Report 14501855 (Version 1)
Quarter: 2018Q1

REPORT INFORMATION
  Report Type: Spontaneous
  Country: FR (occurrence: FR)
  Receive Date: 20180207
  Receipt Date: 20180207
  Transmission Date: 20180509
  Serious: Yes (Other)
  Sender: FDA-Public Use
  Company Number: FR-MERCK KGAA-2041613

PATIENT
  Sex: Female

DRUGS (1)
  1. NOVOTHYROX [Suspect]
     Active Substance: LEVOTHYROXINE SODIUM
     Indication: PRODUCT USED FOR UNKNOWN INDICATION

REACTIONS (7)
  - Fall [None]
  - Diabetes mellitus inadequate control [Recovering/Resolving]
  - Blood pressure increased [None]
  - Palpitations [None]
  - Decreased immune responsiveness [None]
  - Blood thyroid stimulating hormone decreased [Recovered/Resolved]
  - Fatigue [Recovering/Resolving]
